FAERS Safety Report 23942620 (Version 2)
Quarter: 2024Q3

REPORT INFORMATION
  Report Type: Report from Study
  Country: CO (occurrence: CO)
  Receive Date: 20240605
  Receipt Date: 20240715
  Transmission Date: 20241016
  Serious: Yes (Hospitalization)
  Sender: ABBVIE
  Company Number: CO-JNJFOC-20240585109

PATIENT
  Age: 63 Year
  Sex: Male
  Weight: 72 kg

DRUGS (2)
  1. IMBRUVICA [Suspect]
     Active Substance: IBRUTINIB
     Indication: Mantle cell lymphoma
     Route: 048
     Dates: start: 20230911
  2. IMBRUVICA [Suspect]
     Active Substance: IBRUTINIB
     Indication: Mantle cell lymphoma
     Route: 048

REACTIONS (5)
  - Road traffic accident [Unknown]
  - Upper limb fracture [Unknown]
  - Jaw fracture [Unknown]
  - Swelling face [Unknown]
  - Skin laceration [Unknown]

NARRATIVE: CASE EVENT DATE: 20240518
